FAERS Safety Report 15577650 (Version 1)
Quarter: 2018Q4

REPORT INFORMATION
  Report Type: Spontaneous
  Country: DE (occurrence: DE)
  Receive Date: 20181102
  Receipt Date: 20181102
  Transmission Date: 20190205
  Serious: Yes (Other)
  Sender: FDA-Public Use
  Company Number: DE-AUROBINDO-AUR-APL-2017-46817

PATIENT
  Age: 80 Year
  Sex: Male
  Weight: 67 kg

DRUGS (12)
  1. OXALIPLATIN. [Suspect]
     Active Substance: OXALIPLATIN
     Indication: COLORECTAL CANCER METASTATIC
     Dosage: 140 MILLIGRAM, 2 WEEK
     Route: 042
     Dates: start: 20150817
  2. 5-FLUOROURACIL                     /00098801/ [Concomitant]
     Active Substance: FLUOROURACIL
     Indication: COLORECTAL CANCER
     Dosage: 4128 MILLIGRAM, 2 WEEK
     Route: 042
     Dates: start: 20150421, end: 20150528
  3. FOLINIC ACID [Concomitant]
     Active Substance: LEUCOVORIN
     Indication: COLORECTAL CANCER
     Dosage: 688 MILLIGRAM, 2 WEEK
     Route: 042
     Dates: start: 20150421, end: 20150526
  4. AMLODIPIN                          /00972401/ [Concomitant]
     Active Substance: AMLODIPINE BESYLATE
     Indication: HYPERTENSION
     Dosage: 5 MILLIGRAM, ONCE A DAY
     Route: 048
  5. AVASTIN [Suspect]
     Active Substance: BEVACIZUMAB
     Dosage: 335 MILLIGRAM, 2 WEEK
     Route: 042
     Dates: start: 20150511, end: 20150511
  6. FOLINIC ACID [Concomitant]
     Active Substance: LEUCOVORIN
     Dosage: 550 MILLIGRAM, 2 WEEK
     Route: 042
     Dates: start: 20150608, end: 20151019
  7. 5-FLUOROURACIL                     /00098801/ [Concomitant]
     Active Substance: FLUOROURACIL
     Dosage: 3200 MILLIGRAM, 2 WEEK
     Route: 042
     Dates: start: 20150608, end: 20151021
  8. ASPIRIN. [Concomitant]
     Active Substance: ASPIRIN
     Indication: PERIPHERAL ARTERIAL OCCLUSIVE DISEASE
     Dosage: 100 MILLIGRAM, ONCE A DAY
     Route: 048
  9. OXALIPLATIN. [Suspect]
     Active Substance: OXALIPLATIN
     Dosage: 140 MILLIGRAM, 2 WEEK
     Route: 042
     Dates: start: 20150608
  10. OXALIPLATIN. [Suspect]
     Active Substance: OXALIPLATIN
     Dosage: 172 MILLIGRAM, 2 WEEK
     Route: 042
     Dates: start: 20150421
  11. AVASTIN [Suspect]
     Active Substance: BEVACIZUMAB
     Indication: COLORECTAL CANCER METASTATIC
     Dosage: 335 MILLIGRAM, 2 WEEK
     Route: 042
     Dates: start: 20150421
  12. AVASTIN [Suspect]
     Active Substance: BEVACIZUMAB
     Dosage: 335 MILLIGRAM, 2 WEEK
     Route: 042
     Dates: start: 20150817

REACTIONS (6)
  - Oral pain [Recovered/Resolved]
  - Stomatitis [Recovered/Resolved]
  - Oral discomfort [Recovered/Resolved]
  - Oral infection [Recovered/Resolved]
  - Diarrhoea [Recovered/Resolved]
  - Thrombocytopenia [Not Recovered/Not Resolved]

NARRATIVE: CASE EVENT DATE: 20150511
